FAERS Safety Report 6296338-6 (Version None)
Quarter: 2009Q3

REPORT INFORMATION
  Report Type: 
  Country: None (occurrence: None)
  Receive Date: 20090804
  Receipt Date: 20090724
  Transmission Date: 20100115
  Serious: Yes (Other)
  Sender: FDA-Public Use
  Company Number: PHHY2009FR26044

PATIENT
  Sex: Male
  Weight: 65 kg

DRUGS (4)
  1. EXELON [Suspect]
     Indication: DEMENTIA
     Dosage: 9.5MG, DAILY
     Route: 062
  2. EXELON [Suspect]
     Indication: DEMENTIA
  3. PERINDOPRIL [Concomitant]
  4. TIAPRIDAL [Concomitant]

REACTIONS (3)
  - AGITATION [None]
  - DEMENTIA [None]
  - DRUG INTOLERANCE [None]
